FAERS Safety Report 22518767 (Version 1)
Quarter: 2023Q2

REPORT INFORMATION
  Report Type: Spontaneous
  Country: US (occurrence: US)
  Receive Date: 20230605
  Receipt Date: 20230605
  Transmission Date: 20230721
  Serious: Yes (Hospitalization, Other)
  Sender: FDA-Public Use
  Company Number: US-WOCKHARDT LIMITED-2023WLD000059

PATIENT
  Age: 15 Year
  Sex: Female

DRUGS (1)
  1. BUPROPION [Suspect]
     Active Substance: BUPROPION
     Indication: Product used for unknown indication
     Dosage: ALMOST 90 TABLETS
     Route: 065

REACTIONS (4)
  - Acute kidney injury [Recovering/Resolving]
  - Status epilepticus [Recovered/Resolved]
  - Cardiogenic shock [Recovering/Resolving]
  - Intentional overdose [Recovering/Resolving]
